FAERS Safety Report 5086771-2 (Version None)
Quarter: 2006Q3

REPORT INFORMATION
  Report Type: 
  Country: None (occurrence: None)
  Receive Date: 20060823
  Receipt Date: 20060818
  Transmission Date: 20061208
  Serious: Yes (Hospitalization)
  Sender: FDA-Public Use
  Company Number: 2006UW16475

PATIENT
  Age: 69 Year
  Sex: Female
  Weight: 73.5 kg

DRUGS (3)
  1. ARIMIDEX [Suspect]
     Indication: BREAST CANCER FEMALE
     Route: 048
  2. VITAMIN D [Concomitant]
  3. CALCIUM GLUCONATE [Concomitant]

REACTIONS (3)
  - ARTHRALGIA [None]
  - BLOOD CHOLESTEROL INCREASED [None]
  - DIVERTICULITIS [None]
